FAERS Safety Report 5943670-9 (Version None)
Quarter: 2008Q4

REPORT INFORMATION
  Report Type: 
  Country: None (occurrence: None)
  Receive Date: 20081106
  Receipt Date: 20081029
  Transmission Date: 20090506
  Serious: Yes (Other)
  Sender: FDA-Public Use
  Company Number: US-JNJFOC-20081007352

PATIENT
  Age: 82 Year
  Sex: Female
  Weight: 58.06 kg

DRUGS (8)
  1. TYLENOL (CAPLET) [Suspect]
     Indication: OSTEOARTHRITIS
     Route: 048
  2. TYLENOL (CAPLET) [Suspect]
     Indication: INTERVERTEBRAL DISC DISORDER
     Route: 048
  3. NORVASC [Concomitant]
     Indication: HYPERTENSION
  4. COSOPT [Concomitant]
     Indication: GLAUCOMA
     Dosage: MORNING AND EVENING
     Route: 047
  5. ADVIL [Concomitant]
  6. FOSAMAX [Concomitant]
     Indication: OSTEOPOROSIS
  7. XALATAN [Concomitant]
     Indication: GLAUCOMA
     Route: 047
  8. GELATIN [Concomitant]

REACTIONS (4)
  - DIZZINESS [None]
  - DYSPNOEA [None]
  - HYPERHIDROSIS [None]
  - PHARYNGEAL OEDEMA [None]
